FAERS Safety Report 8914475 (Version 2)
Quarter: 2014Q2

REPORT INFORMATION
  Report Type: Spontaneous
  Country: IT (occurrence: IT)
  Receive Date: 20121119
  Receipt Date: 20131120
  Transmission Date: 20141212
  Serious: Yes (Hospitalization)
  Sender: FDA-Public Use
  Company Number: IT-TEVA-369180ISR

PATIENT
  Age: 65 Year
  Sex: Male

DRUGS (8)
  1. CARBOPLATINO TEVA [Suspect]
     Indication: PLEURAL MESOTHELIOMA MALIGNANT
     Dosage: 800 MILLIGRAM DAILY;
     Route: 042
     Dates: start: 20121009, end: 20121030
  2. TORVAST [Concomitant]
     Dosage: 10 MILLIGRAM DAILY;
     Route: 048
  3. SOLDESAM [Concomitant]
     Indication: PREMEDICATION
     Dosage: 8 MG/2ML
     Route: 030
     Dates: start: 20121029, end: 20121030
  4. ASCRIPTIN [Concomitant]
     Dosage: 1 DOSAGE FORMS DAILY;
  5. ALIMTA [Concomitant]
     Dosage: 950 MILLIGRAM DAILY;
     Route: 042
     Dates: start: 20121009, end: 20121030
  6. AMLODIPINA ACTAVIS [Concomitant]
     Dosage: 1 DOSAGE FORMS DAILY;
  7. CO-EFFERALGAN [Concomitant]
     Dosage: 1 DOSAGE FORMS DAILY; PARACETAMOL 500 MG + CODEINE 30 MG
  8. ALLOPURINOLO TEVA [Concomitant]
     Dosage: 1 DOSAGE FORMS DAILY;

REACTIONS (6)
  - Malaise [Recovering/Resolving]
  - Nausea [Recovering/Resolving]
  - Convulsion [Recovering/Resolving]
  - Tremor [Recovering/Resolving]
  - Hyperhidrosis [Recovering/Resolving]
  - Anal sphincter atony [Recovering/Resolving]
